FAERS Safety Report 4476888-5 (Version None)
Quarter: 2004Q4

REPORT INFORMATION
  Report Type: 
  Country: None (occurrence: None)
  Receive Date: 20041013
  Receipt Date: 20040930
  Transmission Date: 20050328
  Serious: Yes (Hospitalization)
  Sender: FDA-Public Use
  Company Number: MK200409-0229-1

PATIENT
  Age: 57 Year
  Sex: Male

DRUGS (1)
  1. TL201 THALLIUM CHLORIDE [Suspect]
     Indication: SCAN MYOCARDIAL PERFUSION

REACTIONS (11)
  - CONJUNCTIVAL HYPERAEMIA [None]
  - EXANTHEM [None]
  - INJECTION SITE PUSTULE [None]
  - MOUTH ULCERATION [None]
  - POST PROCEDURAL COMPLICATION [None]
  - PRURITUS GENERALISED [None]
  - PYREXIA [None]
  - RASH GENERALISED [None]
  - RASH PUSTULAR [None]
  - SKIN BURNING SENSATION [None]
  - SKIN DESQUAMATION [None]
